FAERS Safety Report 17043983 (Version 2)
Quarter: 2019Q4

REPORT INFORMATION
  Report Type: Spontaneous
  Country: IT (occurrence: IT)
  Receive Date: 20191118
  Receipt Date: 20191209
  Transmission Date: 20200122
  Serious: Yes (Other)
  Sender: FDA-Public Use
  Company Number: NVSC2019IT036342

PATIENT
  Age: 54 Year
  Sex: Female
  Weight: 47 kg

DRUGS (1)
  1. GILENYA [Suspect]
     Active Substance: FINGOLIMOD HYDROCHLORIDE
     Indication: PRODUCT USED FOR UNKNOWN INDICATION
     Dosage: 0.5 MG, QD
     Route: 048
     Dates: start: 20180420, end: 20191104

REACTIONS (4)
  - Colorectal adenocarcinoma [Unknown]
  - Rectal stenosis [Not Recovered/Not Resolved]
  - Colon dysplasia [Unknown]
  - Tumour invasion [Unknown]

NARRATIVE: CASE EVENT DATE: 20190901
